FAERS Safety Report 4703607-7 (Version None)
Quarter: 2005Q2

REPORT INFORMATION
  Report Type: 
  Country: None (occurrence: None)
  Receive Date: 20050630
  Receipt Date: 20050620
  Transmission Date: 20051028
  Serious: Yes (Hospitalization)
  Sender: FDA-Public Use
  Company Number: IN-ABBOTT-05P-078-0303915-00

PATIENT
  Age: 12 Year
  Sex: Male
  Weight: 43 kg

DRUGS (5)
  1. VALPROATE SODIUM [Suspect]
     Indication: CONVULSION
  2. TOPIRAMATE [Interacting]
     Indication: CONVULSION
  3. TOPIRAMATE [Interacting]
  4. CLONAZEPAM [Concomitant]
     Indication: CONVULSION
  5. CLONAZEPAM [Concomitant]

REACTIONS (3)
  - DRUG INTERACTION [None]
  - ENCEPHALOPATHY [None]
  - HYPERAMMONAEMIA [None]
